FAERS Safety Report 6925436-6 (Version None)
Quarter: 2010Q3

REPORT INFORMATION
  Report Type: 
  Country: None (occurrence: None)
  Receive Date: 20100816
  Receipt Date: 20100806
  Transmission Date: 20110219
  Serious: Yes (Life-Threatening)
  Sender: FDA-Public Use
  Company Number: US-ROCHE-705422

PATIENT
  Sex: Female
  Weight: 68 kg

DRUGS (2)
  1. AVASTIN [Suspect]
     Dosage: DISCONTINUED. DOSE : 7.5 MG/KG, INFUSION DURATION 40 MINUTES.
     Route: 042
     Dates: start: 20100128, end: 20100505
  2. ZOMETA [Suspect]
     Route: 042
     Dates: start: 20081216, end: 20100401

REACTIONS (1)
  - OSTEONECROSIS OF JAW [None]
